FAERS Safety Report 26195062 (Version 1)
Quarter: 2025Q4

REPORT INFORMATION
  Report Type: Spontaneous
  Country: CN (occurrence: CN)
  Receive Date: 20251224
  Receipt Date: 20251224
  Transmission Date: 20260117
  Serious: Yes (Hospitalization)
  Sender: NOVARTIS
  Company Number: CN-002147023-NVSC2025CN194148

PATIENT
  Age: 79 Year
  Sex: Female
  Weight: 40 kg

DRUGS (1)
  1. CARBAMAZEPINE [Suspect]
     Active Substance: CARBAMAZEPINE
     Indication: Trigeminal neuralgia
     Dosage: 100.000 MG, BID
     Route: 048
     Dates: start: 20250929, end: 20251121

REACTIONS (6)
  - Tubulointerstitial nephritis [Recovering/Resolving]
  - Hepatic function abnormal [Recovering/Resolving]
  - Rash [Unknown]
  - Oliguria [Unknown]
  - Dry mouth [Unknown]
  - Eosinophil count increased [Unknown]

NARRATIVE: CASE EVENT DATE: 20251120
